FAERS Safety Report 7869035-0 (Version None)
Quarter: 2011Q4

REPORT INFORMATION
  Report Type: 
  Country: None (occurrence: None)
  Receive Date: 20111026
  Receipt Date: 20111026
  Transmission Date: 20120403
  Serious: No
  Sender: FDA-Public Use
  Company Number: None

PATIENT
  Sex: Female

DRUGS (1)
  1. METHOTREXATE [Suspect]
     Dosage: 25 MG/ML IJ
     Dates: start: 20111020

REACTIONS (3)
  - INFLUENZA LIKE ILLNESS [None]
  - NAUSEA [None]
  - HEADACHE [None]
